FAERS Safety Report 8736887 (Version 4)
Quarter: 2012Q4

REPORT INFORMATION
  Report Type: 
  Country: DE (occurrence: DE)
  Receive Date: 20120822
  Receipt Date: 20121005
  Transmission Date: 20130627
  Serious: Yes (Other)
  Sender: FDA-Public Use
  Company Number: DE-PFIZER INC-2012200733

PATIENT
  Age: 44 Year
  Sex: Female
  Weight: 64 kg

DRUGS (3)
  1. LYRICA [Suspect]
     Indication: ANXIETY DISORDER
     Dosage: 150 mg, 2x/day (in the morning and in the evening)
     Dates: start: 201206
  2. AVALOX [Interacting]
     Indication: BRONCHITIS BACTERIAL
     Dosage: 400 mg, 1x/day
     Route: 048
     Dates: start: 20120814, end: 20120815
  3. CEFUROXIME [Interacting]
     Indication: BRONCHITIS BACTERIAL
     Dosage: 500 UNK, 2x/day
     Route: 048
     Dates: start: 20120816

REACTIONS (13)
  - Pneumonia [Unknown]
  - Drug interaction [Unknown]
  - Depressed level of consciousness [Unknown]
  - Hypersomnia [Unknown]
  - Illusion [Unknown]
  - Aggression [Unknown]
  - Asthenia [Unknown]
  - Photophobia [Unknown]
  - Feeling abnormal [Unknown]
  - Hypoaesthesia [Unknown]
  - Bronchitis [None]
  - Purulence [None]
  - Asthenia [None]
